FAERS Safety Report 8436463-4 (Version None)
Quarter: 2012Q2

REPORT INFORMATION
  Report Type: 
  Country: None (occurrence: None)
  Receive Date: 20120614
  Receipt Date: 20120605
  Transmission Date: 20120825
  Serious: Yes (Hospitalization, Other)
  Sender: FDA-Public Use
  Company Number: FR-ASTRAZENECA-2012SE37530

PATIENT
  Age: 24282 Day
  Sex: Female

DRUGS (7)
  1. QUETIAPINE FUMARATE [Suspect]
     Route: 048
     Dates: end: 20120206
  2. LEXOMIL [Concomitant]
     Route: 048
  3. HALDOL [Concomitant]
     Route: 048
  4. ANAFRANIL [Concomitant]
     Route: 048
  5. QUETIAPINE FUMARATE [Suspect]
     Route: 048
     Dates: start: 20120207, end: 20120216
  6. TEGRETOL [Concomitant]
     Route: 048
  7. LEVOTHYROXINE SODIUM [Concomitant]
     Route: 048

REACTIONS (11)
  - CHOLESTASIS [None]
  - URINARY INCONTINENCE [None]
  - LEUKOCYTOSIS [None]
  - ANAEMIA MACROCYTIC [None]
  - CONFUSIONAL STATE [None]
  - SYSTEMIC INFLAMMATORY RESPONSE SYNDROME [None]
  - URINARY TRACT INFECTION [None]
  - CELL DEATH [None]
  - FALL [None]
  - MAJOR DEPRESSION [None]
  - DISORIENTATION [None]
